FAERS Safety Report 6523669-4 (Version None)
Quarter: 2009Q4

REPORT INFORMATION
  Report Type: 
  Country: None (occurrence: None)
  Receive Date: 20091231
  Receipt Date: 20091222
  Transmission Date: 20100525
  Serious: Yes (Hospitalization, Other)
  Sender: FDA-Public Use
  Company Number: US-JNJFOC-20091100892

PATIENT
  Sex: Female

DRUGS (4)
  1. REMICADE [Suspect]
     Route: 042
  2. REMICADE [Suspect]
     Route: 042
  3. REMICADE [Suspect]
     Indication: JUVENILE ARTHRITIS
     Route: 042
  4. INSULIN [Concomitant]

REACTIONS (8)
  - ARTHRITIS BACTERIAL [None]
  - INFUSION RELATED REACTION [None]
  - JOINT SWELLING [None]
  - LIP SWELLING [None]
  - OSTEOMYELITIS [None]
  - PYREXIA [None]
  - URTICARIA [None]
  - VOMITING [None]
